FAERS Safety Report 7504836-X (Version None)
Quarter: 2011Q2

REPORT INFORMATION
  Report Type: 
  Country: None (occurrence: None)
  Receive Date: 20110525
  Receipt Date: 20110516
  Transmission Date: 20111010
  Serious: Yes (Death)
  Sender: FDA-Public Use
  Company Number: US-CELGENEUS-163-21880-11051917

PATIENT
  Sex: Female

DRUGS (9)
  1. METOPROLOL TARTRATE [Concomitant]
     Route: 065
  2. DEXMETHASONE [Concomitant]
     Route: 065
  3. BUMETANIDE [Concomitant]
     Route: 065
  4. REVLIMID [Suspect]
     Indication: MULTIPLE MYELOMA
     Dosage: 25 MILLIGRAM
     Route: 048
     Dates: start: 20100201
  5. FERROUS SULFATE TAB [Concomitant]
     Route: 065
  6. CITRACAL [Concomitant]
     Route: 065
  7. REVLIMID [Suspect]
     Dosage: 15-25MG
     Route: 048
     Dates: start: 20100901
  8. REVLIMID [Suspect]
     Dosage: 10 MILLIGRAM
     Route: 048
     Dates: start: 20101201, end: 20110101
  9. ASPIRIN [Concomitant]
     Route: 065

REACTIONS (1)
  - DEATH [None]
